FAERS Safety Report 9259144 (Version 1)
Quarter: 2013Q2

REPORT INFORMATION
  Report Type: Spontaneous
  Country: US (occurrence: US)
  Receive Date: 20130426
  Receipt Date: 20130426
  Transmission Date: 20140414
  Serious: No
  Sender: FDA-Public Use
  Company Number: US-FOUGERA-2012FO001197

PATIENT
  Age: 64 Year
  Sex: Female
  Weight: 74.84 kg

DRUGS (2)
  1. TRIAMCINOLONE ACETONIDE [Suspect]
     Indication: ECZEMA
     Route: 061
     Dates: start: 201101
  2. TRIAMCINOLONE ACETONIDE [Suspect]
     Indication: ECZEMA

REACTIONS (8)
  - Off label use [Not Recovered/Not Resolved]
  - Laryngitis [Not Recovered/Not Resolved]
  - Pharyngitis [Not Recovered/Not Resolved]
  - Ear infection [Not Recovered/Not Resolved]
  - Mouth ulceration [Not Recovered/Not Resolved]
  - Cystitis [Not Recovered/Not Resolved]
  - Pre-existing condition improved [Unknown]
  - Vision blurred [Unknown]
